FAERS Safety Report 25052796 (Version 2)
Quarter: 2025Q2

REPORT INFORMATION
  Report Type: Spontaneous
  Country: US (occurrence: US)
  Receive Date: 20250307
  Receipt Date: 20250403
  Transmission Date: 20250716
  Serious: No
  Sender: SANOFI AVENTIS
  Company Number: US-SA-2025SA064070

PATIENT
  Age: 77 Year
  Sex: Male
  Weight: 75 kg

DRUGS (11)
  1. DUPIXENT [Suspect]
     Active Substance: DUPILUMAB
     Indication: Dermatitis atopic
     Route: 058
     Dates: start: 20250212, end: 20250212
  2. MELOXICAM [Concomitant]
     Active Substance: MELOXICAM
  3. GLIPIZIDE [Concomitant]
     Active Substance: GLIPIZIDE
  4. PRAVASTATIN SODIUM [Concomitant]
     Active Substance: PRAVASTATIN SODIUM
  5. METFORMIN [Concomitant]
     Active Substance: METFORMIN HYDROCHLORIDE
  6. OXYBUTYNIN CHLORIDE [Concomitant]
     Active Substance: OXYBUTYNIN CHLORIDE
  7. TYLENOL EXTRA STRENGTH [Concomitant]
     Active Substance: ACETAMINOPHEN
  8. COLACE [Concomitant]
     Active Substance: DOCUSATE SODIUM
  9. SYMBICORT [Concomitant]
     Active Substance: BUDESONIDE\FORMOTEROL FUMARATE DIHYDRATE
  10. PROAIR RESPICLICK [Concomitant]
     Active Substance: ALBUTEROL SULFATE
  11. OXYGEN [Concomitant]
     Active Substance: OXYGEN

REACTIONS (2)
  - Constipation [Unknown]
  - Pruritus [Unknown]

NARRATIVE: CASE EVENT DATE: 20250301
